FAERS Safety Report 7373686-X (Version None)
Quarter: 2011Q1

REPORT INFORMATION
  Report Type: 
  Country: None (occurrence: None)
  Receive Date: 20110314
  Receipt Date: 20110227
  Transmission Date: 20110831
  Serious: Yes (Other)
  Sender: FDA-Public Use
  Company Number: GB-DEXPHARM-20110302

PATIENT
  Age: 71 Year
  Sex: Female

DRUGS (4)
  1. AUGMENTIN [Suspect]
     Dosage: DOSE: 1.2 G GRAM(S) INTRAVENOUS (NOT OTHERWISE SPECIFIED)
     Route: 042
     Dates: start: 20101108, end: 20101108
  2. LEVOTHYROXINE SODIUM [Concomitant]
  3. BENDROFLUMETHIAZIDE [Concomitant]
  4. SIMVASTATIN [Concomitant]

REACTIONS (1)
  - ANAPHYLACTIC REACTION [None]
